FAERS Safety Report 8954635 (Version 1)
Quarter: 2012Q4

REPORT INFORMATION
  Report Type: Spontaneous
  Country: US (occurrence: None)
  Receive Date: 20121205
  Receipt Date: 20121205
  Transmission Date: 20130627
  Serious: Yes (Life-Threatening, Other)
  Sender: FDA-Public Use
  Company Number: None

PATIENT
  Age: 71 Year
  Sex: Female
  Weight: 61.24 kg

DRUGS (1)
  1. ZETIA [Suspect]
     Indication: BLOOD CHOLESTEROL ABNORMAL
     Dosage: 1 tablet daily po
     Route: 048
     Dates: start: 20051010, end: 20121201

REACTIONS (2)
  - Thyroid cancer [None]
  - Choking [None]
